FAERS Safety Report 5572905-X (Version None)
Quarter: 2007Q4

REPORT INFORMATION
  Report Type: 
  Country: None (occurrence: None)
  Receive Date: 20071224
  Receipt Date: 20071217
  Transmission Date: 20080405
  Serious: Yes (Hospitalization)
  Sender: FDA-Public Use
  Company Number: PHHO2007FR17644

PATIENT
  Age: 77 Year
  Sex: Female

DRUGS (1)
  1. STI571B [Suspect]
     Indication: CHRONIC MYELOID LEUKAEMIA
     Dosage: 400 MG, QD
     Route: 048
     Dates: start: 20011226

REACTIONS (1)
  - GASTROINTESTINAL NEOPLASM [None]
